FAERS Safety Report 18932992 (Version 1)
Quarter: 2021Q1

REPORT INFORMATION
  Report Type: Report from Study
  Country: US (occurrence: US)
  Receive Date: 20210224
  Receipt Date: 20210224
  Transmission Date: 20210420
  Serious: Yes (Other)
  Sender: FDA-Public Use
  Company Number: US-PFIZER INC-2021148651

PATIENT

DRUGS (3)
  1. MANNITOL. [Suspect]
     Active Substance: MANNITOL
     Indication: GERM CELL CANCER
     Dosage: 15 G/M^2(ON DAYS 1 TO 5)
  2. CISPLATIN. [Suspect]
     Active Substance: CISPLATIN
     Indication: GERM CELL CANCER
     Dosage: 20 MG/M2, 1X/DAY( OVER 4 HOURS )(ON DAYS 1 TO 5)
  3. ETOPOSIDE [ETOPOSIDE PHOSPHATE] [Suspect]
     Active Substance: ETOPOSIDE PHOSPHATE
     Indication: GERM CELL CANCER
     Dosage: 100 MG/M2, 1X/DAY(ON DAYS 1 TO 5)
     Route: 042

REACTIONS (1)
  - Deafness [Unknown]
